FAERS Safety Report 23570931 (Version 1)
Quarter: 2024Q1

REPORT INFORMATION
  Report Type: Spontaneous
  Country: US (occurrence: US)
  Receive Date: 20240227
  Receipt Date: 20240227
  Transmission Date: 20240409
  Serious: No
  Sender: FDA-Public Use
  Company Number: US-PFIZER INC-202400049151

PATIENT
  Age: 61 Year
  Sex: Female

DRUGS (4)
  1. INLYTA [Suspect]
     Active Substance: AXITINIB
     Dosage: 5MG TABLET TAKE 1 TABLET (5MG) BY MOUTH TWICE DAILY
     Route: 048
     Dates: start: 20240112
  2. INLYTA [Suspect]
     Active Substance: AXITINIB
     Dosage: 1 DOSE (5MG) PER DAY
     Dates: start: 20240213
  3. METHOCARBAMOL [Concomitant]
     Active Substance: METHOCARBAMOL
     Dosage: UNK
  4. LEVOTHYROXINE [Concomitant]
     Active Substance: LEVOTHYROXINE\LEVOTHYROXINE SODIUM
     Dosage: UNK

REACTIONS (2)
  - Stomatitis [Recovered/Resolved]
  - Off label use [Unknown]
